FAERS Safety Report 9773950 (Version 1)
Quarter: 2013Q4

REPORT INFORMATION
  Report Type: Spontaneous
  Country: US (occurrence: US)
  Receive Date: 20131220
  Receipt Date: 20131220
  Transmission Date: 20140711
  Serious: No
  Sender: FDA-Public Use
  Company Number: US-009507513-1312USA002722

PATIENT
  Sex: Female

DRUGS (1)
  1. TEMODAR [Suspect]
     Indication: BRAIN NEOPLASM
     Dosage: 2 ^100 MG CAPSULES^ EVERY DAY OVER ONE WEEK A MONTH
     Route: 048
     Dates: start: 201305

REACTIONS (5)
  - Fatigue [Unknown]
  - Somnolence [Unknown]
  - Decreased appetite [Unknown]
  - Dysphagia [Unknown]
  - Wrong technique in drug usage process [Unknown]
